FAERS Safety Report 13537727 (Version 2)
Quarter: 2017Q2

REPORT INFORMATION
  Report Type: Spontaneous
  Country: GB (occurrence: GB)
  Receive Date: 20170511
  Receipt Date: 20170613
  Transmission Date: 20170830
  Serious: Yes (Life-Threatening, Other)
  Sender: FDA-Public Use
  Company Number: GB-009507513-1705GBR003929

PATIENT
  Age: 53 Year
  Sex: Male
  Weight: 146 kg

DRUGS (6)
  1. BRIDION [Suspect]
     Active Substance: SUGAMMADEX
     Indication: NEUROMUSCULAR BLOCKADE REVERSAL
     Dosage: STRENGTH: 100 MG/ML; TOTAL DAILY DOSE: 200 MG, ONCE
     Route: 042
     Dates: start: 20170403
  2. SEVOFLURANE. [Concomitant]
     Active Substance: SEVOFLURANE
     Indication: ANAESTHESIA
     Dosage: 1.5 %, UNK
  3. ROCURONIUM BROMIDE. [Concomitant]
     Active Substance: ROCURONIUM BROMIDE
     Dosage: 50 MG, ONCE
  4. MORPHINE [Concomitant]
     Active Substance: MORPHINE
  5. FENTANYL. [Concomitant]
     Active Substance: FENTANYL
     Dosage: 100 MICROGRAM, UNK
  6. PROPOFOL. [Concomitant]
     Active Substance: PROPOFOL
     Dosage: 250 MG, UNK

REACTIONS (5)
  - Cough [Recovered/Resolved]
  - Bronchospasm [Recovered/Resolved]
  - Oxygen saturation decreased [Recovered/Resolved]
  - Crepitations [Recovered/Resolved]
  - Pulmonary oedema [Recovered/Resolved]

NARRATIVE: CASE EVENT DATE: 20170403
